FAERS Safety Report 11135499 (Version 1)
Quarter: 2015Q2

REPORT INFORMATION
  Report Type: Spontaneous
  Country: US (occurrence: None)
  Receive Date: 20150522
  Receipt Date: 20150522
  Transmission Date: 20150821
  Serious: Yes (Disabling)
  Sender: FDA-Public Use
  Company Number: None

PATIENT
  Age: 37 Year
  Sex: Male
  Weight: 81.65 kg

DRUGS (7)
  1. CIPROFLAXIN [Suspect]
     Active Substance: CIPROFLOXACIN
     Indication: EPIDIDYMITIS
     Route: 048
     Dates: start: 20150410, end: 20150427
  2. MAGNESIUM CITRATE. [Concomitant]
     Active Substance: MAGNESIUM CITRATE
  3. MULTIVITAMIN [Concomitant]
     Active Substance: VITAMINS
  4. PRILOSEC [Concomitant]
     Active Substance: OMEPRAZOLE MAGNESIUM
  5. NASACORT AQ [Concomitant]
     Active Substance: TRIAMCINOLONE ACETONIDE
  6. PROBIOTIC FISH OIL [Concomitant]
  7. ZYRTEC [Concomitant]
     Active Substance: CETIRIZINE HYDROCHLORIDE

REACTIONS (13)
  - Palpitations [None]
  - Headache [None]
  - Chest pain [None]
  - Panic attack [None]
  - Tendon disorder [None]
  - Hypoaesthesia [None]
  - Ventricular extrasystoles [None]
  - Paraesthesia [None]
  - Anxiety [None]
  - Dyspnoea [None]
  - Memory impairment [None]
  - No reaction on previous exposure to drug [None]
  - Dizziness [None]

NARRATIVE: CASE EVENT DATE: 20150422
